FAERS Safety Report 6446391-1 (Version None)
Quarter: 2009Q4

REPORT INFORMATION
  Report Type: 
  Country: None (occurrence: None)
  Receive Date: 20091116
  Receipt Date: 20091112
  Transmission Date: 20100525
  Serious: Yes (Hospitalization)
  Sender: FDA-Public Use
  Company Number: 1-1

PATIENT
  Age: 47 Year
  Sex: Female
  Weight: 61.2356 kg

DRUGS (2)
  1. CYCLOSPORINE [Suspect]
     Indication: ONYCHOCLASIS
     Dosage: TOPICAL, BID
     Route: 061
     Dates: start: 20090909
  2. NEXIUM [Concomitant]

REACTIONS (2)
  - HAEMATEMESIS [None]
  - HERNIA [None]
